FAERS Safety Report 8362075 (Version 3)
Quarter: 2015Q3

REPORT INFORMATION
  Report Type: Report from Study
  Country: US (occurrence: US)
  Receive Date: 20120130
  Receipt Date: 20150707
  Transmission Date: 20151125
  Serious: Yes (Death)
  Sender: FDA-Public Use
  Company Number: US-ROCHE-1033995

PATIENT
  Sex: Male
  Weight: 83.08 kg

DRUGS (8)
  1. DECADRON [Concomitant]
     Active Substance: DEXAMETHASONE
     Route: 065
  2. AVASTIN [Suspect]
     Active Substance: BEVACIZUMAB
     Indication: LUNG NEOPLASM MALIGNANT
     Route: 065
     Dates: start: 20051206
  3. TARCEVA [Suspect]
     Active Substance: ERLOTINIB HYDROCHLORIDE
     Indication: LUNG NEOPLASM MALIGNANT
     Route: 048
     Dates: start: 20051012
  4. FOLIC ACID. [Concomitant]
     Active Substance: FOLIC ACID
     Route: 065
  5. TAXOL [Concomitant]
     Active Substance: PACLITAXEL
  6. CELEXA (UNITED STATES) [Concomitant]
  7. IBUPROFEN. [Concomitant]
     Active Substance: IBUPROFEN
  8. ALIMTA [Concomitant]
     Active Substance: PEMETREXED DISODIUM
     Route: 065

REACTIONS (13)
  - Cough [Recovered/Resolved]
  - Dry skin [Unknown]
  - Abdominal pain upper [Unknown]
  - Disease progression [Unknown]
  - Ageusia [Unknown]
  - Swelling [Unknown]
  - Dermatitis acneiform [Unknown]
  - Death [Fatal]
  - Feeling cold [Unknown]
  - Diarrhoea [Unknown]
  - Rhinorrhoea [Unknown]
  - Fatigue [Unknown]
  - Off label use [Unknown]
